FAERS Safety Report 14928743 (Version 1)
Quarter: 2018Q2

REPORT INFORMATION
  Report Type: Report from Study
  Country: US (occurrence: US)
  Receive Date: 20180523
  Receipt Date: 20180523
  Transmission Date: 20180711
  Serious: Yes (Death, Hospitalization)
  Sender: FDA-Public Use
  Company Number: US-JNJFOC-20180507765

PATIENT
  Age: 80 Year
  Sex: Female

DRUGS (14)
  1. LINUM USITATISSIMUM SEED [Concomitant]
  2. OCUVITE [Concomitant]
     Active Substance: VITAMINS
  3. LORAZEPAM. [Concomitant]
     Active Substance: LORAZEPAM
  4. IMBRUVICA [Suspect]
     Active Substance: IBRUTINIB
     Indication: WALDENSTROM^S MACROGLOBULINAEMIA
     Dates: start: 20160527
  5. ALLOPURINOL. [Concomitant]
     Active Substance: ALLOPURINOL
  6. FOSAMAX [Concomitant]
     Active Substance: ALENDRONATE SODIUM
  7. OMEGA 3 [Concomitant]
     Active Substance: OMEGA-3 FATTY ACIDS
  8. DEPAKOTE [Concomitant]
     Active Substance: DIVALPROEX SODIUM
  9. IMBRUVICA [Suspect]
     Active Substance: IBRUTINIB
     Indication: WALDENSTROM^S MACROGLOBULINAEMIA
     Route: 048
     Dates: start: 20180410
  10. FUROSEMIDE. [Concomitant]
     Active Substance: FUROSEMIDE
  11. ALBUTEROL. [Concomitant]
     Active Substance: ALBUTEROL
  12. TYLENOL [Concomitant]
     Active Substance: ACETAMINOPHEN
  13. BUDESONIDE. [Concomitant]
     Active Substance: BUDESONIDE
  14. CALCIUM [Concomitant]
     Active Substance: CALCIUM

REACTIONS (4)
  - Femur fracture [Unknown]
  - Hip fracture [Unknown]
  - Fall [Unknown]
  - Death [Fatal]

NARRATIVE: CASE EVENT DATE: 20180327
